FAERS Safety Report 21870011 (Version 3)
Quarter: 2023Q4

REPORT INFORMATION
  Report Type: Spontaneous
  Country: US (occurrence: US)
  Receive Date: 20230117
  Receipt Date: 20231208
  Transmission Date: 20240109
  Serious: Yes (Other)
  Sender: FDA-Public Use
  Company Number: US-BEH-2023154117

PATIENT
  Sex: Female

DRUGS (16)
  1. HIZENTRA [Suspect]
     Active Substance: HUMAN IMMUNOGLOBULIN G
     Indication: Immunodeficiency
     Dosage: 10 GRAM, QOW
     Route: 058
     Dates: start: 20220330
  2. ACETAMINOPHEN [Concomitant]
     Active Substance: ACETAMINOPHEN
     Dosage: 325 MILLIGRAM
  3. CETIRIZINE [Concomitant]
     Active Substance: CETIRIZINE HYDROCHLORIDE
     Dosage: 1 MILLIGRAM/ML
  4. CETIRIZINE [Concomitant]
     Active Substance: CETIRIZINE HYDROCHLORIDE
     Dosage: 10 MILLIGRAM
  5. DIPHENHYDRAMINE [Concomitant]
     Active Substance: DIPHENHYDRAMINE
     Dosage: 25 MILLIGRAM
  6. DIPHENHYDRAMINE [Concomitant]
     Active Substance: DIPHENHYDRAMINE
  7. EPINEPHRINE [Concomitant]
     Active Substance: EPINEPHRINE
     Dosage: 0.3 MILLIGRAM
  8. FAMOTIDINE [Concomitant]
     Active Substance: FAMOTIDINE
     Dosage: 20 MILLIGRAM
  9. PROAIR HFA [Concomitant]
     Active Substance: ALBUTEROL SULFATE
  10. RAPAMUNE [Concomitant]
     Active Substance: SIROLIMUS
     Dosage: 1 MILLIGRAM/ML
  11. SIROLIMUS [Concomitant]
     Active Substance: SIROLIMUS
     Dosage: UNK
  12. BENADRYL [Concomitant]
     Active Substance: DIPHENHYDRAMINE HYDROCHLORIDE
     Indication: Premedication
  13. BENADRYL [Concomitant]
     Active Substance: DIPHENHYDRAMINE HYDROCHLORIDE
     Indication: Premedication
  14. MOTRIN [Concomitant]
     Active Substance: IBUPROFEN
     Indication: Premedication
     Dosage: 200 MILLIGRAM
  15. FLUTICASONE [Concomitant]
     Active Substance: FLUTICASONE
     Dosage: 50 MICROGRAM
  16. LIDOCAINE [Concomitant]
     Active Substance: LIDOCAINE
     Dosage: 5 PERCENT

REACTIONS (3)
  - Headache [Not Recovered/Not Resolved]
  - Drug ineffective [Unknown]
  - Pharyngitis streptococcal [Recovered/Resolved]
